FAERS Safety Report 17758837 (Version 3)
Quarter: 2020Q3

REPORT INFORMATION
  Report Type: Report from Study
  Country: US (occurrence: US)
  Receive Date: 20200507
  Receipt Date: 20200918
  Transmission Date: 20201102
  Serious: Yes (Other)
  Sender: FDA-Public Use
  Company Number: US-BIOGEN-2020BI00860228

PATIENT
  Age: 46 Year
  Sex: Male

DRUGS (1)
  1. TYSABRI [Suspect]
     Active Substance: NATALIZUMAB
     Indication: MULTIPLE SCLEROSIS
     Dosage: INFUSED FOR OVER 1 HOUR
     Route: 065
     Dates: start: 20200331

REACTIONS (16)
  - Palpitations [Recovered/Resolved]
  - Dry mouth [Unknown]
  - Gastric disorder [Unknown]
  - Fatigue [Recovered/Resolved]
  - Dyspnoea [Unknown]
  - Myocardial infarction [Unknown]
  - Multiple allergies [Recovered/Resolved]
  - Dry throat [Unknown]
  - Chest pain [Unknown]
  - Abdominal distension [Unknown]
  - Chest discomfort [Recovered/Resolved]
  - Anxiety [Unknown]
  - Dry eye [Unknown]
  - Nasal dryness [Unknown]
  - COVID-19 [Recovered/Resolved]
  - Heart rate decreased [Unknown]

NARRATIVE: CASE EVENT DATE: 202004
